FAERS Safety Report 13042345 (Version 1)
Quarter: 2016Q4

REPORT INFORMATION
  Report Type: Spontaneous
  Country: US (occurrence: US)
  Receive Date: 20161219
  Receipt Date: 20161219
  Transmission Date: 20170207
  Serious: Yes (Death)
  Sender: FDA-Public Use
  Company Number: US-UNITED THERAPEUTICS-UNT-2016-019035

PATIENT
  Sex: Female

DRUGS (1)
  1. REMODULIN [Suspect]
     Active Substance: TREPROSTINIL
     Indication: PULMONARY ARTERIAL HYPERTENSION
     Dosage: 24 ?G/KG, CONTINUING
     Route: 041
     Dates: start: 20161130, end: 20161212

REACTIONS (3)
  - Pulmonary arterial hypertension [Fatal]
  - Hypotension [Unknown]
  - Systemic lupus erythematosus [Fatal]

NARRATIVE: CASE EVENT DATE: 201612
